FAERS Safety Report 4620271-6 (Version None)
Quarter: 2005Q1

REPORT INFORMATION
  Report Type: 
  Country: None (occurrence: None)
  Receive Date: 20050324
  Receipt Date: 20050308
  Transmission Date: 20050727
  Serious: Yes (Hospitalization)
  Sender: FDA-Public Use
  Company Number: EWC050343085

PATIENT
  Age: 67 Year
  Sex: Female

DRUGS (10)
  1. GEMCITABINE HYDROCHLORIDE-IV  (GEMCITABINE) [Suspect]
     Indication: BILE DUCT CANCER
     Dosage: 1000 MG/M2
     Dates: start: 20041006, end: 20041203
  2. TRIATEC (RAMIPRIL DURA) [Concomitant]
  3. FERROUS SULFATE TAB [Concomitant]
  4. SPIRON (SPIRONOLACTONE) [Concomitant]
  5. PAMOL (PARACETAMOL) [Concomitant]
  6. LAKTULOSE   DAK    (LACTULOSE) [Concomitant]
  7. PROPANE FORTE [Concomitant]
  8. SERANASE (HALOPERIDOL) [Concomitant]
  9. OXALIPLATINE [Concomitant]
  10. XELODA [Concomitant]

REACTIONS (5)
  - AMNESIA [None]
  - BLOOD GLUCOSE INCREASED [None]
  - COMA HEPATIC [None]
  - CONFUSIONAL STATE [None]
  - INFECTION [None]
